FAERS Safety Report 5478705-3 (Version None)
Quarter: 2007Q4

REPORT INFORMATION
  Report Type: 
  Country: None (occurrence: None)
  Receive Date: 20071005
  Receipt Date: 20071004
  Transmission Date: 20080405
  Serious: Yes (Hospitalization)
  Sender: FDA-Public Use
  Company Number: JP-ROXANE LABORATORIES, INC-2007-BP-22117RO

PATIENT
  Age: 51 Year
  Sex: Female

DRUGS (4)
  1. THEOP [Suspect]
     Indication: ASTHMA
     Dates: start: 19980101, end: 20030301
  2. CALCIUM LACTATE [Suspect]
     Indication: OSTEOPOROSIS
  3. ALFACALCIDIOL [Suspect]
     Indication: OSTEOPOROSIS
  4. PREDNISOLONE [Concomitant]
     Indication: ASTHMA
     Dates: start: 19880101

REACTIONS (2)
  - HYPERCALCAEMIA [None]
  - RENAL IMPAIRMENT [None]
